FAERS Safety Report 8779085 (Version 4)
Quarter: 2012Q4

REPORT INFORMATION
  Report Type: 
  Country: US (occurrence: US)
  Receive Date: 20120912
  Receipt Date: 20121114
  Transmission Date: 20130627
  Serious: Yes (Hospitalization, Other)
  Sender: FDA-Public Use
  Company Number: US-009507513-1209USA001903

PATIENT
  Sex: Female

DRUGS (13)
  1. VICTRELIS [Suspect]
     Indication: HEPATITIS C
     Dosage: 4 DF, tid
     Route: 048
     Dates: start: 20120801
  2. VICTRELIS [Suspect]
     Dosage: UNK UNK, bid
     Route: 048
  3. PEGASYS [Suspect]
  4. RIBASPHERE [Suspect]
  5. VITAMINS (UNSPECIFIED) [Concomitant]
  6. LIPITOR [Concomitant]
  7. METOPROLOL [Concomitant]
  8. VENLAFAXINE HYDROCHLORIDE [Concomitant]
  9. LOVAZA [Concomitant]
  10. ALPRAZOLAM [Concomitant]
  11. QUINAPRIL HYDROCHLORIDE [Concomitant]
  12. PLAVIX [Concomitant]
  13. ASPIRIN [Concomitant]

REACTIONS (11)
  - Pancytopenia [Recovering/Resolving]
  - Nausea [Recovering/Resolving]
  - Vomiting [Recovering/Resolving]
  - Dehydration [Unknown]
  - Gastrointestinal disorder [Unknown]
  - Anxiety [Unknown]
  - Depression [Unknown]
  - Anaemia [Recovering/Resolving]
  - Dry mouth [Unknown]
  - Dysgeusia [Unknown]
  - Glossodynia [Unknown]
